FAERS Safety Report 7529326 (Version 4)
Quarter: 2013Q2

REPORT INFORMATION
  Report Type: Report from Study
  Country: DE (occurrence: DE)
  Receive Date: 20100805
  Receipt Date: 20130530
  Transmission Date: 20140414
  Serious: Yes (Death, Other)
  Sender: FDA-Public Use
  Company Number: DE-CELGENEUS-062-21880-10080146

PATIENT
  Sex: 0

DRUGS (27)
  1. REVLIMID [Suspect]
     Indication: ACUTE MYELOID LEUKAEMIA
     Dosage: 25-50 MG
     Route: 048
     Dates: end: 20090430
  2. TRAMAL [Concomitant]
     Indication: PAIN IN EXTREMITY
     Dosage: 75 MILLIGRAM
     Route: 065
     Dates: start: 200903, end: 2009
  3. SEVREDOL [Concomitant]
     Indication: PAIN IN EXTREMITY
     Dosage: 10 MILLIGRAM
     Route: 065
     Dates: start: 20090320
  4. SEVREDOL [Concomitant]
     Dosage: 20 MILLIGRAM
     Route: 065
     Dates: start: 20090322, end: 20090325
  5. SEVREDOL [Concomitant]
     Dosage: 40 MILLIGRAM
     Route: 065
     Dates: start: 20090409, end: 20090409
  6. SEVREDOL [Concomitant]
     Dosage: 20 MILLIGRAM
     Route: 065
     Dates: start: 20090414, end: 20090415
  7. OPIUM [Concomitant]
     Indication: PAIN IN EXTREMITY
     Route: 048
     Dates: start: 20090320
  8. LOPERAMID [Concomitant]
     Indication: DIARRHOEA
     Dosage: 8 MILLIGRAM
     Route: 065
     Dates: start: 20090319, end: 20090319
  9. LOPERAMID [Concomitant]
     Dosage: 16 MILLIGRAM
     Route: 065
     Dates: start: 20090320, end: 20090322
  10. LOPERAMID [Concomitant]
     Route: 065
     Dates: start: 20090323
  11. ALLOPURINOL [Concomitant]
     Indication: PROPHYLAXIS
     Dosage: 300 MILLIGRAM
     Route: 065
     Dates: start: 20090304
  12. TAVANIC [Concomitant]
     Indication: INFECTION PROPHYLAXIS
     Dosage: 500 MILLIGRAM
     Route: 065
     Dates: start: 20090304, end: 20090320
  13. FLUCONAZOL [Concomitant]
     Indication: ANTIFUNGAL PROPHYLAXIS
     Dosage: 100 MILLIGRAM
     Route: 065
     Dates: start: 20090319, end: 20090430
  14. CIPROBAY [Concomitant]
     Indication: INFECTION PROPHYLAXIS
     Dosage: 500 MILLIGRAM
     Route: 065
     Dates: start: 20090321, end: 20090321
  15. COTRIM [Concomitant]
     Indication: INFECTION PROPHYLAXIS
     Dosage: 960 MILLIGRAM
     Route: 065
     Dates: start: 20090322, end: 20090323
  16. PREDNISOLON [Concomitant]
     Indication: SWELLING
     Route: 065
     Dates: start: 20090321
  17. KALINOR [Concomitant]
     Indication: HYPOKALAEMIA
     Dosage: 2400 MILLIGRAM
     Route: 065
     Dates: start: 20090325, end: 20090326
  18. PARACETAMOL [Concomitant]
     Indication: FEBRILE NEUTROPENIA
     Dosage: 1 GRAM
     Route: 048
     Dates: start: 20090404, end: 20090413
  19. TAZOBAC [Concomitant]
     Indication: FEBRILE NEUTROPENIA
     Dosage: 18 GRAM
     Route: 041
     Dates: start: 20090408, end: 20090413
  20. METAMIZOL [Concomitant]
     Indication: FEBRILE NEUTROPENIA
     Dosage: 1 GRAM
     Route: 065
     Dates: start: 20090408
  21. CLINDAMYCIN [Concomitant]
     Indication: FEBRILE NEUTROPENIA
     Dosage: 1800 MILLIGRAM
     Route: 065
     Dates: start: 20090414, end: 20090419
  22. ZIENAM [Concomitant]
     Indication: FEBRILE NEUTROPENIA
     Dosage: 2000 MILLIGRAM
     Route: 065
     Dates: start: 20090413, end: 20090420
  23. PARACODEINE [Concomitant]
     Indication: COUGH
     Dosage: 20 MILLIGRAM
     Route: 065
     Dates: start: 20090412, end: 20090417
  24. PANTHENOL [Concomitant]
     Indication: DRY MOUTH
     Route: 065
     Dates: start: 20090412
  25. SOLU DECORTIN H [Concomitant]
     Indication: PROPHYLAXIS
     Dosage: 100 MILLIGRAM
     Route: 065
     Dates: start: 20090419, end: 20090419
  26. SOLU DECORTIN H [Concomitant]
     Dosage: 100 MILLIGRAM
     Route: 065
     Dates: start: 20090427, end: 20090427
  27. RED BLOOD CELLS [Concomitant]
     Indication: ANAEMIA
     Route: 041

REACTIONS (28)
  - Multi-organ failure [Fatal]
  - Diarrhoea haemorrhagic [Unknown]
  - Tachycardia [Unknown]
  - Febrile neutropenia [Unknown]
  - Acute myeloid leukaemia [Unknown]
  - Anaemia [Unknown]
  - Thrombocytopenia [Unknown]
  - Injection site inflammation [Unknown]
  - Cheilitis [Unknown]
  - Eyelid oedema [Unknown]
  - Chills [Unknown]
  - Oropharyngeal pain [Unknown]
  - Petechiae [Unknown]
  - Vertigo [Unknown]
  - Decreased appetite [Unknown]
  - Dyspnoea exertional [Unknown]
  - Pruritus [Unknown]
  - Pruritus [Unknown]
  - Oedema peripheral [Unknown]
  - Dyspnoea [Unknown]
  - Pyrexia [Unknown]
  - Constipation [Unknown]
  - Night sweats [Unknown]
  - Cough [Unknown]
  - Productive cough [Unknown]
  - Dry mouth [Unknown]
  - Face oedema [Unknown]
  - Pain in extremity [Unknown]
